FAERS Safety Report 17153096 (Version 1)
Quarter: 2019Q4

REPORT INFORMATION
  Report Type: Report from Study
  Country: DE (occurrence: DE)
  Receive Date: 20191213
  Receipt Date: 20191213
  Transmission Date: 20200122
  Serious: Yes (Hospitalization)
  Sender: FDA-Public Use
  Company Number: DE-MYLANLABS-2019M1122942

PATIENT
  Age: 79 Year
  Sex: Male

DRUGS (3)
  1. HUMIRA [Suspect]
     Active Substance: ADALIMUMAB
     Indication: RHEUMATOID ARTHRITIS
     Dosage: 40 MILLIGRAM
     Route: 058
     Dates: start: 201010, end: 201306
  2. HUMIRA [Suspect]
     Active Substance: ADALIMUMAB
     Dosage: 40 MILLIGRAM
     Route: 058
     Dates: start: 201307
  3. METHOTREXATE. [Suspect]
     Active Substance: METHOTREXATE
     Indication: PRODUCT USED FOR UNKNOWN INDICATION
     Dosage: UNK (7.5 - 15 MG)
     Route: 065

REACTIONS (11)
  - Hypertensive crisis [Unknown]
  - Anxiety disorder [Unknown]
  - Dysphagia [Unknown]
  - Motor neurone disease [Unknown]
  - Respiratory alkalosis [Unknown]
  - Chronic fatigue syndrome [Unknown]
  - Coronary artery disease [Unknown]
  - General physical health deterioration [Unknown]
  - Cachexia [Unknown]
  - Atrial fibrillation [Unknown]
  - Hyperventilation [Unknown]

NARRATIVE: CASE EVENT DATE: 20180109
